FAERS Safety Report 4665026-1 (Version None)
Quarter: 2005Q2

REPORT INFORMATION
  Report Type: 
  Country: None (occurrence: None)
  Receive Date: 20050517
  Receipt Date: 20050429
  Transmission Date: 20051028
  Serious: Yes (Other)
  Sender: FDA-Public Use
  Company Number: GBS050517277

PATIENT
  Age: 13 Year
  Weight: 50 kg

DRUGS (5)
  1. FLUOXETINE [Suspect]
     Indication: DEPRESSION
     Dosage: 20 MG DAY
     Dates: start: 20040902, end: 20050113
  2. GAVISCON [Concomitant]
  3. HYDROGEN PEROXIDE SOLUTION [Concomitant]
  4. HYDROCORTISONE [Concomitant]
  5. AMOXICILLIN [Concomitant]

REACTIONS (1)
  - EPILEPSY [None]
